FAERS Safety Report 6206731-5 (Version None)
Quarter: 2009Q2

REPORT INFORMATION
  Report Type: 
  Country: None (occurrence: None)
  Receive Date: 20090528
  Receipt Date: 20090428
  Transmission Date: 20091009
  Serious: No
  Sender: FDA-Public Use
  Company Number: US-BAYER-200911347BCC

PATIENT
  Age: 83 Year
  Sex: Male
  Weight: 74 kg

DRUGS (6)
  1. ALEVE [Suspect]
     Indication: ARTHRITIS
     Dosage: UNIT DOSE: 220 MG
     Route: 048
     Dates: start: 20090201
  2. FIBER [Concomitant]
     Indication: DRUG USE FOR UNKNOWN INDICATION
     Route: 065
  3. CALCIUM SUPPLEMENT [Concomitant]
     Indication: DRUG USE FOR UNKNOWN INDICATION
     Route: 065
  4. FISH OIL [Concomitant]
     Indication: DRUG USE FOR UNKNOWN INDICATION
     Route: 065
  5. GLUCOSAMINE [Concomitant]
     Indication: DRUG USE FOR UNKNOWN INDICATION
     Route: 065
  6. OTHER UNKNOWN PRESCRIPTION MEDICATIONS [Concomitant]
     Indication: DRUG USE FOR UNKNOWN INDICATION
     Route: 065

REACTIONS (1)
  - RHINORRHOEA [None]
